FAERS Safety Report 20918586 (Version 1)
Quarter: 2022Q2

REPORT INFORMATION
  Report Type: Spontaneous
  Country: RU (occurrence: RU)
  Receive Date: 20220606
  Receipt Date: 20220606
  Transmission Date: 20220720
  Serious: Yes (Other)
  Sender: FDA-Public Use
  Company Number: RU-ORGANON-O2203RUS002046

PATIENT
  Age: 17 Year
  Sex: Female
  Weight: 53 kg

DRUGS (5)
  1. DIPROSPAN [Suspect]
     Active Substance: BETAMETHASONE DIPROPIONATE\BETAMETHASONE SODIUM PHOSPHATE
     Indication: Seasonal allergy
     Dosage: 1 ML; INTRAMUSCULARLY; 1 TIME IN A YEAR
     Route: 030
     Dates: start: 2016
  2. DIPROSPAN [Suspect]
     Active Substance: BETAMETHASONE DIPROPIONATE\BETAMETHASONE SODIUM PHOSPHATE
     Dosage: 1 ML; INTRAMUSCULARLY; 1 TIME IN A YEAR
     Route: 030
  3. DIPROSPAN [Suspect]
     Active Substance: BETAMETHASONE DIPROPIONATE\BETAMETHASONE SODIUM PHOSPHATE
     Dosage: 1 INJECTION INTO SUBCUTANEOUS ADIPOSE TISSUE/ 1 TIME A YEAR
     Route: 058
     Dates: end: 2018
  4. CETIRIZINE HYDROCHLORIDE [Concomitant]
     Active Substance: CETIRIZINE HYDROCHLORIDE
     Indication: Seasonal allergy
     Dosage: 10 MILLIGRAM, QD, PER O.S.
     Route: 048
  5. CHLOROPYRAMINE HYDROCHLORIDE [Concomitant]
     Active Substance: CHLOROPYRAMINE HYDROCHLORIDE
     Indication: Seasonal allergy
     Dosage: 50 MILLIGRAM QD, AS PER O.S.
     Route: 048

REACTIONS (2)
  - Injection site deformation [Recovered/Resolved with Sequelae]
  - Incorrect route of product administration [Unknown]
